FAERS Safety Report 16458637 (Version 1)
Quarter: 2019Q2

REPORT INFORMATION
  Report Type: Spontaneous
  Country: US (occurrence: US)
  Receive Date: 20190620
  Receipt Date: 20190620
  Transmission Date: 20190711
  Serious: No
  Sender: FDA-Public Use
  Company Number: US-THERAPEUTICSMD-2019TMD00567

PATIENT
  Age: 68 Year
  Sex: Female
  Weight: 58.96 kg

DRUGS (8)
  1. VITAMIN C [Concomitant]
     Active Substance: ASCORBIC ACID
  2. UNSPECIFIED SEASON ALLERGIES MEDICATION [Concomitant]
  3. UNSPECIFIED CHOLESTEROL MEDICATION [Concomitant]
     Active Substance: UNSPECIFIED INGREDIENT
  4. VITAMIN E [Concomitant]
     Active Substance: .ALPHA.-TOCOPHEROL
  5. UNSPECIFIED HIGH BLOOD PRESSURE MEDICATION [Concomitant]
     Active Substance: UNSPECIFIED INGREDIENT
  6. IMVEXXY [Suspect]
     Active Substance: ESTRADIOL
     Indication: VULVOVAGINAL DRYNESS
     Dosage: 10 ?G, EVERY 3-4 DAYS BEFORE BED
     Route: 067
     Dates: start: 201809, end: 201903
  7. VITAMIN D [Concomitant]
     Active Substance: VITAMIN D NOS
  8. IMVEXXY [Suspect]
     Active Substance: ESTRADIOL
     Indication: BLADDER DISORDER

REACTIONS (2)
  - Diverticulitis [Recovering/Resolving]
  - Off label use [Recovered/Resolved]

NARRATIVE: CASE EVENT DATE: 201809
